FAERS Safety Report 9679220 (Version 5)
Quarter: 2013Q4

REPORT INFORMATION
  Report Type: Spontaneous
  Country: GB (occurrence: GB)
  Receive Date: 20131108
  Receipt Date: 20131223
  Transmission Date: 20140711
  Serious: Yes (Hospitalization)
  Sender: FDA-Public Use
  Company Number: GB-BIOMARINAP-GB-2013-101869

PATIENT
  Age: 24 Year
  Sex: Female

DRUGS (2)
  1. ALDURAZYME [Suspect]
     Indication: MUCOPOLYSACCHARIDOSIS I
     Dosage: UNK UNK, QW
     Route: 042
  2. WARFARIN [Suspect]
     Indication: PRODUCT USED FOR UNKNOWN INDICATION

REACTIONS (6)
  - Cardiac operation [Unknown]
  - Decreased appetite [Not Recovered/Not Resolved]
  - Impaired healing [Unknown]
  - Excessive granulation tissue [Unknown]
  - Catheter site pain [Not Recovered/Not Resolved]
  - Alopecia [Unknown]
